FAERS Safety Report 17495516 (Version 1)
Quarter: 2020Q1

REPORT INFORMATION
  Report Type: Spontaneous
  Country: US (occurrence: US)
  Receive Date: 20200303
  Receipt Date: 20200303
  Transmission Date: 20200409
  Serious: No
  Sender: FDA-Public Use
  Company Number: US-GE HEALTHCARE LIFE SCIENCES-2019CSU005148

PATIENT
  Age: 9 Year
  Sex: Female
  Weight: 33 kg

DRUGS (2)
  1. ADREVIEW [Suspect]
     Active Substance: IOBENGUANE I-123
     Indication: NEUROBLASTOMA
  2. ADREVIEW [Suspect]
     Active Substance: IOBENGUANE I-123
     Indication: SCAN
     Dosage: 5.5 MBQ, SINGLE
     Route: 065
     Dates: start: 20191001, end: 20191001

REACTIONS (2)
  - No adverse event [Recovered/Resolved]
  - Drug ineffective [Recovered/Resolved]

NARRATIVE: CASE EVENT DATE: 20191002
